FAERS Safety Report 9723112 (Version 1)
Quarter: 2013Q4

REPORT INFORMATION
  Report Type: Spontaneous
  Country: US (occurrence: None)
  Receive Date: 20131126
  Receipt Date: 20131126
  Transmission Date: 20140711
  Serious: Yes (Other)
  Sender: FDA-Public Use
  Company Number: 13-04805

PATIENT
  Sex: Female

DRUGS (2)
  1. RACEPINEPHRINE [Suspect]
     Indication: PRODUCT USED FOR UNKNOWN INDICATION
  2. ASTHMANEFRIN [Suspect]

REACTIONS (1)
  - Haemoptysis [None]
